FAERS Safety Report 9325483 (Version 1)
Quarter: 2013Q2

REPORT INFORMATION
  Report Type: Spontaneous
  Country: US (occurrence: None)
  Receive Date: 20130531
  Receipt Date: 20130531
  Transmission Date: 20140414
  Serious: Yes (Other)
  Sender: FDA-Public Use
  Company Number: None

PATIENT
  Age: 76 Year
  Sex: Female

DRUGS (1)
  1. HEPARIN [Suspect]
     Indication: ARTERIAL STENOSIS
     Dosage: COMTINUOUS DRIP
     Route: 042
     Dates: start: 20130305, end: 20130306

REACTIONS (2)
  - Haematuria [None]
  - Activated partial thromboplastin time prolonged [None]
